FAERS Safety Report 7892534-2 (Version None)
Quarter: 2011Q4

REPORT INFORMATION
  Report Type: 
  Country: None (occurrence: None)
  Receive Date: 20111104
  Receipt Date: 20111026
  Transmission Date: 20120403
  Serious: Yes (Other)
  Sender: FDA-Public Use
  Company Number: US-JNJFOC-20111100233

PATIENT
  Age: 75 Year
  Sex: Female

DRUGS (7)
  1. TRILIPIX [Concomitant]
     Indication: BLOOD CHOLESTEROL
  2. LOSARTAN POTASSIUM [Concomitant]
     Indication: HYPERTENSION
  3. PEPCID COMPLETE [Suspect]
     Indication: GASTROOESOPHAGEAL REFLUX DISEASE
     Route: 048
  4. ACIPHEX [Suspect]
     Indication: PRODUCT USED FOR UNKNOWN INDICATION
     Route: 065
  5. PEPCID COMPLETE [Suspect]
     Route: 048
  6. ATENOLOL [Concomitant]
     Indication: HYPERTENSION
  7. ZETIA [Concomitant]
     Indication: BLOOD CHOLESTEROL

REACTIONS (1)
  - DIABETES MELLITUS [None]
